FAERS Safety Report 5494450-2 (Version None)
Quarter: 2007Q4

REPORT INFORMATION
  Report Type: 
  Country: None (occurrence: None)
  Receive Date: 20071024
  Receipt Date: 20071022
  Transmission Date: 20080405
  Serious: Yes (Other)
  Sender: FDA-Public Use
  Company Number: FI-BRISTOL-MYERS SQUIBB COMPANY-13941422

PATIENT
  Age: 55 Year
  Sex: Female

DRUGS (4)
  1. CETUXIMAB [Suspect]
     Indication: COLORECTAL CANCER METASTATIC
     Dosage: 5MG/ML
     Route: 042
     Dates: start: 20060711, end: 20060711
  2. FLUOROURACIL [Suspect]
     Indication: COLORECTAL CANCER METASTATIC
     Dates: start: 20060711, end: 20060711
  3. FOLINIC ACID [Suspect]
     Indication: COLORECTAL CANCER METASTATIC
     Dates: start: 20060711, end: 20060711
  4. OXALIPLATIN [Suspect]
     Indication: COLORECTAL CANCER METASTATIC
     Dates: start: 20060711, end: 20060711

REACTIONS (1)
  - THROMBOSIS [None]
